FAERS Safety Report 14678719 (Version 5)
Quarter: 2018Q2

REPORT INFORMATION
  Report Type: Report from Study
  Country: FR (occurrence: FR)
  Receive Date: 20180326
  Receipt Date: 20180611
  Transmission Date: 20180711
  Serious: Yes (Other)
  Sender: FDA-Public Use
  Company Number: FR-AUROBINDO-AUR-APL-2018-016515

PATIENT

DRUGS (83)
  1. METFORMIN [Suspect]
     Active Substance: METFORMIN HYDROCHLORIDE
     Dosage: UNK ()
     Route: 065
  2. METFORMIN [Suspect]
     Active Substance: METFORMIN HYDROCHLORIDE
     Dosage: UNK ()
     Route: 065
  3. METFORMIN [Suspect]
     Active Substance: METFORMIN HYDROCHLORIDE
     Dosage: UNK ()
     Route: 065
  4. DARUNAVIR [Concomitant]
     Active Substance: DARUNAVIR
     Indication: ANTIRETROVIRAL THERAPY
     Dosage: UNK
     Route: 065
  5. DARUNAVIR [Concomitant]
     Active Substance: DARUNAVIR
     Dosage: UNK ()
  6. DARUNAVIR [Concomitant]
     Active Substance: DARUNAVIR
     Dosage: UNK ()
  7. RALTEGRAVIR. [Concomitant]
     Active Substance: RALTEGRAVIR
     Dosage: UNK ()
  8. RALTEGRAVIR. [Concomitant]
     Active Substance: RALTEGRAVIR
     Dosage: UNK ()
  9. METFORMIN [Suspect]
     Active Substance: METFORMIN HYDROCHLORIDE
     Dosage: UNK ()
     Route: 065
  10. METFORMIN [Suspect]
     Active Substance: METFORMIN HYDROCHLORIDE
     Dosage: UNK ()
     Route: 065
  11. DARUNAVIR [Concomitant]
     Active Substance: DARUNAVIR
     Dosage: UNK ()
  12. DARUNAVIR [Concomitant]
     Active Substance: DARUNAVIR
     Dosage: UNK ()
  13. DARUNAVIR [Concomitant]
     Active Substance: DARUNAVIR
     Dosage: UNK ()
  14. DARUNAVIR [Concomitant]
     Active Substance: DARUNAVIR
     Dosage: UNK ()
  15. DARUNAVIR [Concomitant]
     Active Substance: DARUNAVIR
     Dosage: UNK ()
  16. EMTRICITABINE [Concomitant]
     Active Substance: EMTRICITABINE
     Indication: ANTIRETROVIRAL THERAPY
     Dosage: UNK
     Route: 065
  17. RALTEGRAVIR. [Concomitant]
     Active Substance: RALTEGRAVIR
     Dosage: UNK ()
  18. RALTEGRAVIR. [Concomitant]
     Active Substance: RALTEGRAVIR
     Dosage: UNK ()
  19. RALTEGRAVIR. [Concomitant]
     Active Substance: RALTEGRAVIR
     Dosage: UNK ()
  20. RALTEGRAVIR. [Concomitant]
     Active Substance: RALTEGRAVIR
     Dosage: UNK ()
  21. RALTEGRAVIR. [Concomitant]
     Active Substance: RALTEGRAVIR
     Dosage: UNK ()
  22. METFORMIN [Suspect]
     Active Substance: METFORMIN HYDROCHLORIDE
     Dosage: ()
     Route: 065
  23. METFORMIN [Suspect]
     Active Substance: METFORMIN HYDROCHLORIDE
     Dosage: UNK ()
     Route: 065
  24. METFORMIN [Suspect]
     Active Substance: METFORMIN HYDROCHLORIDE
     Dosage: UNK ()
     Route: 065
  25. METFORMIN [Suspect]
     Active Substance: METFORMIN HYDROCHLORIDE
     Dosage: UNK ()
     Route: 065
  26. DARUNAVIR [Concomitant]
     Active Substance: DARUNAVIR
     Dosage: UNK ()
  27. DARUNAVIR [Concomitant]
     Active Substance: DARUNAVIR
     Dosage: UNK ()
  28. RALTEGRAVIR. [Concomitant]
     Active Substance: RALTEGRAVIR
     Dosage: UNK ()
  29. RITONAVIR. [Concomitant]
     Active Substance: RITONAVIR
     Indication: PRODUCT USED FOR UNKNOWN INDICATION
     Route: 065
  30. METFORMIN [Suspect]
     Active Substance: METFORMIN HYDROCHLORIDE
     Dosage: UNK ()
     Route: 065
  31. METFORMIN [Suspect]
     Active Substance: METFORMIN HYDROCHLORIDE
     Dosage: UNK ()
     Route: 065
  32. DARUNAVIR [Concomitant]
     Active Substance: DARUNAVIR
     Dosage: UNK ()
  33. DARUNAVIR [Concomitant]
     Active Substance: DARUNAVIR
     Dosage: UNK ()
  34. DARUNAVIR [Concomitant]
     Active Substance: DARUNAVIR
     Dosage: UNK ()
  35. RALTEGRAVIR. [Concomitant]
     Active Substance: RALTEGRAVIR
     Dosage: UNK ()
  36. RALTEGRAVIR. [Concomitant]
     Active Substance: RALTEGRAVIR
     Dosage: UNK ()
  37. RALTEGRAVIR. [Concomitant]
     Active Substance: RALTEGRAVIR
     Dosage: UNK ()
  38. RALTEGRAVIR. [Concomitant]
     Active Substance: RALTEGRAVIR
     Dosage: UNK ()
  39. RALTEGRAVIR. [Concomitant]
     Active Substance: RALTEGRAVIR
     Dosage: UNK ()
  40. RALTEGRAVIR. [Concomitant]
     Active Substance: RALTEGRAVIR
     Dosage: UNK ()
  41. METFORMIN [Suspect]
     Active Substance: METFORMIN HYDROCHLORIDE
     Dosage: UNK ()
     Route: 065
  42. METFORMIN [Suspect]
     Active Substance: METFORMIN HYDROCHLORIDE
     Dosage: UNK ()
     Route: 065
  43. METFORMIN [Suspect]
     Active Substance: METFORMIN HYDROCHLORIDE
     Dosage: UNK ()
     Route: 065
  44. DARUNAVIR [Concomitant]
     Active Substance: DARUNAVIR
     Dosage: UNK ()
  45. DARUNAVIR [Concomitant]
     Active Substance: DARUNAVIR
     Dosage: UNK ()
  46. DARUNAVIR [Concomitant]
     Active Substance: DARUNAVIR
     Dosage: UNK ()
  47. DARUNAVIR [Concomitant]
     Active Substance: DARUNAVIR
     Dosage: UNK ()
  48. DARUNAVIR [Concomitant]
     Active Substance: DARUNAVIR
     Dosage: UNK ()
  49. DARUNAVIR [Concomitant]
     Active Substance: DARUNAVIR
     Dosage: UNK ()
  50. DARUNAVIR [Concomitant]
     Active Substance: DARUNAVIR
     Dosage: UNK ()
  51. RALTEGRAVIR. [Concomitant]
     Active Substance: RALTEGRAVIR
     Dosage: UNK ()
  52. TENOFOVIR DISOPROXIL FILM COATED TABLETS [Suspect]
     Active Substance: TENOFOVIR DISOPROXIL
     Indication: ANTIRETROVIRAL THERAPY
     Dosage: UNK
     Route: 065
  53. METFORMIN [Suspect]
     Active Substance: METFORMIN HYDROCHLORIDE
     Dosage: UNK ()
     Route: 065
  54. METFORMIN [Suspect]
     Active Substance: METFORMIN HYDROCHLORIDE
     Dosage: UNK ()
     Route: 065
  55. METFORMIN [Suspect]
     Active Substance: METFORMIN HYDROCHLORIDE
     Dosage: UNK ()
     Route: 065
  56. DARUNAVIR [Concomitant]
     Active Substance: DARUNAVIR
     Dosage: UNK ()
  57. DARUNAVIR [Concomitant]
     Active Substance: DARUNAVIR
     Dosage: UNK ()
  58. DARUNAVIR [Concomitant]
     Active Substance: DARUNAVIR
     Dosage: UNK ()
  59. RALTEGRAVIR. [Concomitant]
     Active Substance: RALTEGRAVIR
     Indication: ANTIRETROVIRAL THERAPY
     Dosage: UNK
     Route: 065
  60. RALTEGRAVIR. [Concomitant]
     Active Substance: RALTEGRAVIR
     Dosage: UNK ()
  61. RALTEGRAVIR. [Concomitant]
     Active Substance: RALTEGRAVIR
     Dosage: UNK ()
  62. RALTEGRAVIR. [Concomitant]
     Active Substance: RALTEGRAVIR
     Dosage: UNK ()
  63. METFORMIN [Suspect]
     Active Substance: METFORMIN HYDROCHLORIDE
     Indication: PRODUCT USED FOR UNKNOWN INDICATION
     Dosage: UNK
     Route: 065
  64. METFORMIN [Suspect]
     Active Substance: METFORMIN HYDROCHLORIDE
     Dosage: UNK ()
     Route: 065
  65. METFORMIN [Suspect]
     Active Substance: METFORMIN HYDROCHLORIDE
     Dosage: UNK ()
     Route: 065
  66. DARUNAVIR [Concomitant]
     Active Substance: DARUNAVIR
     Dosage: UNK ()
  67. DARUNAVIR [Concomitant]
     Active Substance: DARUNAVIR
     Dosage: UNK ()
  68. DARUNAVIR [Concomitant]
     Active Substance: DARUNAVIR
     Dosage: UNK ()
  69. DARUNAVIR [Concomitant]
     Active Substance: DARUNAVIR
     Dosage: UNK ()
  70. DARUNAVIR [Concomitant]
     Active Substance: DARUNAVIR
     Dosage: UNK ()
  71. RALTEGRAVIR. [Concomitant]
     Active Substance: RALTEGRAVIR
     Dosage: UNK ()
  72. METFORMIN [Suspect]
     Active Substance: METFORMIN HYDROCHLORIDE
     Dosage: UNK ()
     Route: 065
  73. DARUNAVIR [Concomitant]
     Active Substance: DARUNAVIR
     Dosage: UNK ()
  74. DARUNAVIR [Concomitant]
     Active Substance: DARUNAVIR
     Dosage: UNK ()
  75. DARUNAVIR [Concomitant]
     Active Substance: DARUNAVIR
     Dosage: UNK ()
  76. EMTRICITABINE [Concomitant]
     Active Substance: EMTRICITABINE
     Dosage: ()
     Route: 065
  77. RALTEGRAVIR. [Concomitant]
     Active Substance: RALTEGRAVIR
     Dosage: UNK ()
  78. RALTEGRAVIR. [Concomitant]
     Active Substance: RALTEGRAVIR
     Dosage: UNK ()
  79. RALTEGRAVIR. [Concomitant]
     Active Substance: RALTEGRAVIR
     Dosage: UNK ()
  80. RALTEGRAVIR. [Concomitant]
     Active Substance: RALTEGRAVIR
     Dosage: UNK ()
  81. RALTEGRAVIR. [Concomitant]
     Active Substance: RALTEGRAVIR
     Dosage: UNK ()
  82. RALTEGRAVIR. [Concomitant]
     Active Substance: RALTEGRAVIR
     Dosage: UNK ()
  83. RALTEGRAVIR. [Concomitant]
     Active Substance: RALTEGRAVIR
     Dosage: UNK ()

REACTIONS (3)
  - Acute kidney injury [Unknown]
  - Renal tubular dysfunction [Unknown]
  - Nephropathy toxic [Unknown]
